FAERS Safety Report 7812212-5 (Version None)
Quarter: 2011Q4

REPORT INFORMATION
  Report Type: 
  Country: None (occurrence: None)
  Receive Date: 20111013
  Receipt Date: 20111004
  Transmission Date: 20120403
  Serious: Yes (Hospitalization)
  Sender: FDA-Public Use
  Company Number: US-ELI_LILLY_AND_COMPANY-US201110002130

PATIENT
  Sex: Female

DRUGS (5)
  1. HUMALOG [Suspect]
     Indication: DIABETES MELLITUS
     Dosage: UNK, TID
  2. HUMALOG [Suspect]
     Dosage: UNK, PRN
  3. HUMALOG [Suspect]
     Dosage: UNK, PRN
  4. HUMALOG [Suspect]
     Dosage: UNK, TID
  5. LANTUS [Concomitant]
     Dosage: UNK UNK, EACH MORNING

REACTIONS (4)
  - PNEUMONIA [None]
  - INCORRECT DOSE ADMINISTERED [None]
  - BLOOD GLUCOSE DECREASED [None]
  - BLOOD GLUCOSE INCREASED [None]
